FAERS Safety Report 9626641 (Version 2)
Quarter: 2013Q4

REPORT INFORMATION
  Report Type: Spontaneous
  Country: US (occurrence: US)
  Receive Date: 20131016
  Receipt Date: 20131016
  Transmission Date: 20140711
  Serious: Yes (Hospitalization)
  Sender: FDA-Public Use
  Company Number: US-ACTELION-A-US2013-88955

PATIENT
  Age: 25 Year
  Sex: Male

DRUGS (4)
  1. TRACLEER [Suspect]
     Indication: PULMONARY HYPERTENSION
     Dosage: 125 MG BID
     Route: 048
  2. TADALAFIL [Concomitant]
     Dosage: 40 MG, UNK
  3. AMIODARONE [Concomitant]
     Dosage: 200 MG, UNK
  4. REMODULIN [Concomitant]
     Dosage: 38 NG/KG, PER MIN

REACTIONS (9)
  - Pneumonia aspiration [Recovering/Resolving]
  - Haemoptysis [Recovering/Resolving]
  - Pneumothorax [Recovering/Resolving]
  - Pneumonia staphylococcal [Recovering/Resolving]
  - Hypoxia [Recovering/Resolving]
  - Respiratory failure [Recovering/Resolving]
  - Fluid overload [Recovering/Resolving]
  - Pulmonary haemorrhage [Recovering/Resolving]
  - Pleural effusion [Recovering/Resolving]
